FAERS Safety Report 4309066-0 (Version None)
Quarter: 2004Q1

REPORT INFORMATION
  Report Type: 
  Country: None (occurrence: None)
  Receive Date: 20040301
  Receipt Date: 20040217
  Transmission Date: 20041129
  Serious: Yes (Hospitalization, Other)
  Sender: FDA-Public Use
  Company Number: HQWYE018117FEB04

PATIENT
  Age: 80 Year
  Sex: Female

DRUGS (5)
  1. ADVIL [Suspect]
     Dosage: 400 MG (FREQUENCY UNKNOWN), ORAL
     Route: 048
     Dates: start: 20030919, end: 20030920
  2. DILTIAZEM HYDROCHLORIDE [Concomitant]
  3. SIMVASTATIN [Concomitant]
  4. TANAKAN (GINKGO TREE LEAVES EXTRACT) [Concomitant]
  5. LORAZEPAM [Concomitant]

REACTIONS (3)
  - COLITIS ULCERATIVE [None]
  - RECTAL HAEMORRHAGE [None]
  - SIGMOIDITIS [None]
